FAERS Safety Report 17162753 (Version 1)
Quarter: 2019Q4

REPORT INFORMATION
  Report Type: Spontaneous
  Country: US (occurrence: US)
  Receive Date: 20191216
  Receipt Date: 20191216
  Transmission Date: 20200122
  Serious: Yes (Hospitalization)
  Sender: FDA-Public Use
  Company Number: None

PATIENT
  Age: 43 Year
  Sex: Female
  Weight: 144.45 kg

DRUGS (1)
  1. ALENDRONATE NA 40MG TAB [Suspect]
     Active Substance: ALENDRONATE SODIUM
     Indication: OSTEOPOROSIS
     Dosage: ?          QUANTITY:60 TABLET(S);?
     Route: 048
     Dates: start: 20191121, end: 20191210

REACTIONS (11)
  - Peripheral swelling [None]
  - Abdominal pain upper [None]
  - Dyspnoea [None]
  - Pain [None]
  - Weight increased [None]
  - Pruritus [None]
  - Nausea [None]
  - Fatigue [None]
  - Arthropathy [None]
  - Diarrhoea [None]
  - Bone disorder [None]

NARRATIVE: CASE EVENT DATE: 20191210
